FAERS Safety Report 6970392-8 (Version None)
Quarter: 2010Q3

REPORT INFORMATION
  Report Type: 
  Country: None (occurrence: None)
  Receive Date: 20100824
  Receipt Date: 20100521
  Transmission Date: 20110219
  Serious: No
  Sender: FDA-Public Use
  Company Number: 309422

PATIENT
  Age: 58 Year
  Sex: Female

DRUGS (4)
  1. VICTOZA [Suspect]
     Indication: TYPE 2 DIABETES MELLITUS
  2. ZOLOFT [Concomitant]
  3. CLONOPIN [Concomitant]
  4. METFORMIN HCL [Concomitant]

REACTIONS (1)
  - ABDOMINAL PAIN UPPER [None]
